FAERS Safety Report 6240686-2 (Version None)
Quarter: 2009Q2

REPORT INFORMATION
  Report Type: 
  Country: None (occurrence: None)
  Receive Date: 20090623
  Receipt Date: 20090123
  Transmission Date: 20091009
  Serious: No
  Sender: FDA-Public Use
  Company Number: US-ASTRAZENECA-2009UW02155

PATIENT
  Age: 29014 Day
  Sex: Male

DRUGS (5)
  1. PULMICORT FLEXHALER [Suspect]
     Route: 055
     Dates: start: 20090120
  2. NEXIUM [Concomitant]
     Route: 048
  3. LIPITOR [Concomitant]
  4. FELODIPINE [Concomitant]
  5. SERTRALINE [Concomitant]

REACTIONS (2)
  - ABDOMINAL DISTENSION [None]
  - POLLAKIURIA [None]
